FAERS Safety Report 22618196 (Version 2)
Quarter: 2023Q2

REPORT INFORMATION
  Report Type: Spontaneous
  Country: US (occurrence: US)
  Receive Date: 20230620
  Receipt Date: 20230629
  Transmission Date: 20230721
  Serious: No
  Sender: FDA-Public Use
  Company Number: US-LUPIN PHARMACEUTICALS INC.-2023-04710

PATIENT

DRUGS (1)
  1. AZITHROMYCIN ANHYDROUS [Suspect]
     Active Substance: AZITHROMYCIN ANHYDROUS
     Indication: Product used for unknown indication
     Dosage: UNK
     Route: 065
     Dates: start: 20230608

REACTIONS (6)
  - Dyspnoea [Not Recovered/Not Resolved]
  - Hypersensitivity [Unknown]
  - Eye swelling [Unknown]
  - Ocular hyperaemia [Unknown]
  - Product substitution issue [Unknown]
  - Pharyngitis [Unknown]

NARRATIVE: CASE EVENT DATE: 20230601
